FAERS Safety Report 4921483-4 (Version None)
Quarter: 2006Q1

REPORT INFORMATION
  Report Type: 
  Country: None (occurrence: None)
  Receive Date: 20060224
  Receipt Date: 20050810
  Transmission Date: 20060701
  Serious: Yes (Other)
  Sender: FDA-Public Use
  Company Number: PHEH2005US08920

PATIENT
  Sex: Female

DRUGS (9)
  1. ZOMETA [Suspect]
     Indication: MULTIPLE MYELOMA
     Dosage: 4 MG, MONTHLY
     Route: 042
     Dates: start: 20040601
  2. HYDROCHLOROTHIAZIDE [Concomitant]
     Dosage: 25 MG, QD
  3. THALIDOMIDE [Concomitant]
     Dosage: 50 MG, QD
     Route: 048
     Dates: start: 20040601, end: 20051001
  4. PROPRANOLOL [Concomitant]
     Dosage: 80 MG, QD
  5. ESTRING [Concomitant]
     Dosage: 2 MG, VAGINAL
     Route: 067
  6. K-TAB [Concomitant]
     Dosage: UNK, QD
  7. FAMOTIDINE [Concomitant]
     Dosage: 40 MG, QD
  8. COUMADIN [Concomitant]
     Dosage: 2 MG, QD
     Route: 048
  9. DEXAMETHASONE SODIUM PHOSPHATE [Concomitant]
     Dosage: UNK, ON TAPERING
     Dates: start: 20040601

REACTIONS (13)
  - ARTHROPATHY [None]
  - BONE DENSITY DECREASED [None]
  - BONE DISORDER [None]
  - BONE LESION [None]
  - ENDODONTIC PROCEDURE [None]
  - JAW DISORDER [None]
  - JAW FRACTURE [None]
  - MOBILITY DECREASED [None]
  - PAIN IN JAW [None]
  - PERIODONTITIS [None]
  - SURGERY [None]
  - TOOTH DISORDER [None]
  - TOOTH LOSS [None]
